FAERS Safety Report 4485466-3 (Version None)
Quarter: 2004Q4

REPORT INFORMATION
  Report Type: 
  Country: None (occurrence: None)
  Receive Date: 20041026
  Receipt Date: 20041019
  Transmission Date: 20050328
  Serious: Yes (Congenital Anomaly)
  Sender: FDA-Public Use
  Company Number: 200413152EU

PATIENT
  Sex: Female

DRUGS (3)
  1. CLOMID [Suspect]
     Indication: INFERTILITY
     Route: 064
  2. DKTP-VACCIN ^RIVM^ [Concomitant]
     Dates: start: 20040921, end: 20040921
  3. HIB VACCINATION [Concomitant]
     Dates: start: 20040921, end: 20040921

REACTIONS (4)
  - AICARDI'S SYNDROME [None]
  - CONVULSION [None]
  - MATERNAL DRUGS AFFECTING FOETUS [None]
  - VACCINATION COMPLICATION [None]
